FAERS Safety Report 11271955 (Version 1)
Quarter: 2015Q3

REPORT INFORMATION
  Report Type: Spontaneous
  Country: IE (occurrence: None)
  Receive Date: 20150713
  Receipt Date: 20150713
  Transmission Date: 20151125
  Serious: Yes (Death)
  Sender: FDA-Public Use
  Company Number: INT_00829_2015

PATIENT

DRUGS (2)
  1. CISPLATIN (CISPLATIN) (HQ SPECIALTY) [Suspect]
     Active Substance: CISPLATIN
     Indication: SQUAMOUS CELL CARCINOMA OF HEAD AND NECK
     Dosage: (40 MG/M2, 40 MG/M2 ONCE EVERY WEEK FOR 6 WEEKS)
  2. RADIOTHERAPY [Suspect]
     Active Substance: RADIATION THERAPY
     Indication: SQUAMOUS CELL CARCINOMA OF HEAD AND NECK
     Dosage: (DF)

REACTIONS (3)
  - Sepsis [None]
  - Deep vein thrombosis [None]
  - Multi-organ failure [None]
